FAERS Safety Report 7460117-4 (Version None)
Quarter: 2011Q2

REPORT INFORMATION
  Report Type: 
  Country: None (occurrence: None)
  Receive Date: 20110505
  Receipt Date: 20110426
  Transmission Date: 20111010
  Serious: Yes (Hospitalization)
  Sender: FDA-Public Use
  Company Number: US-ELI_LILLY_AND_COMPANY-US201104007275

PATIENT
  Sex: Female
  Weight: 55.782 kg

DRUGS (1)
  1. BYETTA [Suspect]
     Indication: TYPE 2 DIABETES MELLITUS
     Dosage: 5 UG, BID
     Route: 058
     Dates: end: 20110412

REACTIONS (4)
  - BLOOD CREATININE INCREASED [None]
  - VOMITING [None]
  - DIARRHOEA [None]
  - DEHYDRATION [None]
